FAERS Safety Report 7287490-4 (Version None)
Quarter: 2011Q1

REPORT INFORMATION
  Report Type: 
  Country: None (occurrence: None)
  Receive Date: 20110211
  Receipt Date: 20110209
  Transmission Date: 20110831
  Serious: Yes (Hospitalization, Other)
  Sender: FDA-Public Use
  Company Number: IT-BRISTOL-MYERS SQUIBB COMPANY-15513419

PATIENT
  Age: 85 Year
  Sex: Female

DRUGS (3)
  1. DILTIAZEM [Concomitant]
     Route: 048
  2. APROVEL [Concomitant]
     Route: 048
  3. COUMADIN [Suspect]
     Indication: ATRIAL FIBRILLATION
     Route: 048
     Dates: start: 20100805, end: 20110115

REACTIONS (2)
  - FALL [None]
  - HAEMATOMA [None]
